FAERS Safety Report 5530694-9 (Version None)
Quarter: 2007Q4

REPORT INFORMATION
  Report Type: 
  Country: None (occurrence: None)
  Receive Date: 20071128
  Receipt Date: 20071128
  Transmission Date: 20080405
  Serious: Yes (Hospitalization)
  Sender: FDA-Public Use
  Company Number: None

PATIENT
  Sex: Male
  Weight: 96.7 kg

DRUGS (2)
  1. CARBAMAZEPINE [Suspect]
     Indication: BIPOLAR DISORDER
     Dosage: 1000MG X 2 PO
     Route: 048
     Dates: start: 20071014
  2. TRAZODONE HCL [Concomitant]

REACTIONS (6)
  - ASTHENIA [None]
  - ATAXIA [None]
  - DIZZINESS [None]
  - DRUG ABUSE [None]
  - INCORRECT DOSE ADMINISTERED [None]
  - VISION BLURRED [None]
